FAERS Safety Report 8298964-1 (Version None)
Quarter: 2012Q2

REPORT INFORMATION
  Report Type: 
  Country: None (occurrence: None)
  Receive Date: 20120419
  Receipt Date: 20120413
  Transmission Date: 20120825
  Serious: Yes (Hospitalization, Disabling)
  Sender: FDA-Public Use
  Company Number: US-MERCK-1111USA02613

PATIENT
  Age: 75 Year
  Sex: Female
  Weight: 76 kg

DRUGS (6)
  1. FOSAMAX [Suspect]
     Indication: OSTEOPOROSIS
     Route: 048
     Dates: start: 19980101, end: 20061029
  2. FOSAMAX [Suspect]
     Route: 048
     Dates: start: 20000705, end: 20010901
  3. FOSAMAX [Suspect]
     Indication: OSTEOPENIA
     Route: 048
     Dates: start: 19980101, end: 20061029
  4. ACTONEL [Suspect]
     Indication: OSTEOPOROSIS
     Route: 048
     Dates: start: 20050101, end: 20090101
  5. ACTONEL [Suspect]
     Indication: OSTEOPENIA
     Route: 048
     Dates: start: 20050101, end: 20090101
  6. FOSAMAX [Suspect]
     Route: 048
     Dates: start: 20000705, end: 20010901

REACTIONS (29)
  - LOCALISED INFECTION [None]
  - OTITIS EXTERNA [None]
  - UPPER RESPIRATORY TRACT INFECTION [None]
  - TYMPANIC MEMBRANE PERFORATION [None]
  - OSTEONECROSIS OF JAW [None]
  - MASS [None]
  - ARTHROPOD BITE [None]
  - LARYNGITIS [None]
  - DERMAL CYST [None]
  - EXOSTOSIS [None]
  - DENTAL FISTULA [None]
  - URINARY TRACT INFECTION [None]
  - ORAL INFECTION [None]
  - OSTEOARTHRITIS [None]
  - CYST [None]
  - IMPAIRED HEALING [None]
  - TOOTH FRACTURE [None]
  - SINUSITIS [None]
  - DEVICE BREAKAGE [None]
  - DEVICE RELATED INFECTION [None]
  - INFECTED DERMAL CYST [None]
  - BUNION [None]
  - DENTAL CARIES [None]
  - MUSCLE STRAIN [None]
  - SENSITIVITY OF TEETH [None]
  - SCARLET FEVER [None]
  - DEVICE FAILURE [None]
  - TOOTH DISORDER [None]
  - SYNOVIAL CYST [None]
